FAERS Safety Report 16614058 (Version 1)
Quarter: 2019Q3

REPORT INFORMATION
  Report Type: Report from Study
  Country: EC (occurrence: EC)
  Receive Date: 20190723
  Receipt Date: 20190723
  Transmission Date: 20191004
  Serious: Yes (Hospitalization)
  Sender: FDA-Public Use
  Company Number: EC-EMD SERONO-9105655

PATIENT
  Age: 2 Year
  Sex: Male

DRUGS (2)
  1. SAIZEN [Suspect]
     Active Substance: SOMATROPIN
     Dosage: DRUG RESTARTED
     Route: 058
     Dates: start: 20190714
  2. SAIZEN [Suspect]
     Active Substance: SOMATROPIN
     Indication: GROWTH HORMONE DEFICIENCY
     Route: 058
     Dates: start: 20190624

REACTIONS (4)
  - Haemolysis [Unknown]
  - Haemoglobin decreased [Unknown]
  - Pallor [Unknown]
  - Ocular icterus [Unknown]

NARRATIVE: CASE EVENT DATE: 2019
